FAERS Safety Report 16164672 (Version 1)
Quarter: 2019Q2

REPORT INFORMATION
  Report Type: Spontaneous
  Country: CA (occurrence: CA)
  Receive Date: 20190405
  Receipt Date: 20190405
  Transmission Date: 20190711
  Serious: Yes (Life-Threatening, Hospitalization)
  Sender: FDA-Public Use
  Company Number: CA-HLSUS-2019-CA-000382

PATIENT
  Age: 26 Year
  Sex: Male

DRUGS (1)
  1. CLOZAPINE. [Suspect]
     Active Substance: CLOZAPINE
     Indication: SCHIZOPHRENIA
     Dosage: 400MG 2 EVERY 1 DAY
     Route: 048

REACTIONS (6)
  - Acute kidney injury [Recovered/Resolved]
  - Pancreatic pseudocyst [Recovered/Resolved]
  - Rhabdomyolysis [Recovered/Resolved]
  - Agitation [Recovered/Resolved]
  - Anaemia [Recovered/Resolved]
  - Pancreatitis [Recovered/Resolved]
